FAERS Safety Report 5356181-9 (Version None)
Quarter: 2007Q2

REPORT INFORMATION
  Report Type: 
  Country: None (occurrence: None)
  Receive Date: 20070612
  Receipt Date: 20070605
  Transmission Date: 20071010
  Serious: Yes (Other)
  Sender: FDA-Public Use
  Company Number: FR-PFIZER INC-2007046856

PATIENT
  Age: 55 Year
  Sex: Male

DRUGS (1)
  1. LYRICA [Suspect]
     Indication: NEURALGIA
     Dates: start: 20070401, end: 20070401

REACTIONS (5)
  - DELIRIUM [None]
  - FALL [None]
  - HALLUCINATION [None]
  - MEMORY IMPAIRMENT [None]
  - SLEEP WALKING [None]
